FAERS Safety Report 20664972 (Version 6)
Quarter: 2024Q1

REPORT INFORMATION
  Report Type: Spontaneous
  Country: US (occurrence: US)
  Receive Date: 20220401
  Receipt Date: 20240315
  Transmission Date: 20240410
  Serious: Yes (Other)
  Sender: FDA-Public Use
  Company Number: US-PFIZER INC-2021364367

PATIENT
  Age: 74 Year
  Sex: Female
  Weight: 76.553 kg

DRUGS (5)
  1. IBRANCE [Suspect]
     Active Substance: PALBOCICLIB
     Indication: Hormone receptor positive HER2 negative breast cancer
     Dosage: 100 MG
     Route: 048
     Dates: start: 202103
  2. IBRANCE [Suspect]
     Active Substance: PALBOCICLIB
     Dosage: 75 MG
     Route: 048
  3. IBRANCE [Suspect]
     Active Substance: PALBOCICLIB
     Dosage: 75 MG, CYCLIC (ONCE DAILY FOR 14 DAYS ON, FOLLOWED BY 7 DAYS OFF)
     Route: 048
  4. FEMARA [Concomitant]
     Active Substance: LETROZOLE
     Dosage: DAILY Q (EVERY) 28D X 24 CYCLES
     Route: 048
     Dates: start: 202103
  5. ZOLOFT [Concomitant]
     Active Substance: SERTRALINE HYDROCHLORIDE
     Dosage: UNK

REACTIONS (8)
  - Leukopenia [Unknown]
  - Thrombocytopenia [Unknown]
  - COVID-19 [Unknown]
  - Full blood count decreased [Unknown]
  - Blood creatine increased [Unknown]
  - Blood glucose increased [Unknown]
  - Glomerular filtration rate decreased [Unknown]
  - Off label use [Unknown]

NARRATIVE: CASE EVENT DATE: 20230720
